FAERS Safety Report 15211731 (Version 1)
Quarter: 2018Q3

REPORT INFORMATION
  Report Type: Spontaneous
  Country: US (occurrence: US)
  Receive Date: 20180702
  Receipt Date: 20180702
  Transmission Date: 20181010
  Serious: No
  Sender: FDA-Public Use
  Company Number: None

PATIENT
  Age: 70 Year
  Sex: Female
  Weight: 85.73 kg

DRUGS (6)
  1. ATORVASTATIN [Concomitant]
     Active Substance: ATORVASTATIN
  2. AMLODIPINETY [Concomitant]
  3. SERTRALINE [Concomitant]
     Active Substance: SERTRALINE HYDROCHLORIDE
  4. OXYBUTYNIN. [Concomitant]
     Active Substance: OXYBUTYNIN CHLORIDE
  5. TYLENOL [Concomitant]
     Active Substance: ACETAMINOPHEN
  6. SENSODYNE RAPID RELIEF [Suspect]
     Active Substance: STANNOUS FLUORIDE
     Indication: SENSITIVITY OF TEETH
     Dates: start: 20180618, end: 20180620

REACTIONS (7)
  - Pruritus generalised [None]
  - Mouth swelling [None]
  - Oral discomfort [None]
  - Oral mucosal exfoliation [None]
  - Tongue blistering [None]
  - Cheilitis [None]
  - Tongue discomfort [None]

NARRATIVE: CASE EVENT DATE: 20180618
